FAERS Safety Report 9495091 (Version 2)
Quarter: 2013Q4

REPORT INFORMATION
  Report Type: Spontaneous
  Country: US (occurrence: US)
  Receive Date: 20130903
  Receipt Date: 20131011
  Transmission Date: 20140711
  Serious: Yes (Hospitalization)
  Sender: FDA-Public Use
  Company Number: US-BAYER-2013-106020

PATIENT
  Age: 28 Year
  Sex: Female
  Weight: 61.22 kg

DRUGS (5)
  1. YASMIN [Suspect]
     Indication: ACNE
     Dosage: UNK
     Dates: start: 200607, end: 200611
  2. YASMIN [Suspect]
     Indication: ENDOMETRIOSIS
  3. VITAMINE C [Concomitant]
  4. ADVIL [Concomitant]
  5. TYLENOL PM [Concomitant]

REACTIONS (14)
  - Pulmonary embolism [Recovered/Resolved]
  - Uterine leiomyoma [None]
  - Injury [Recovered/Resolved]
  - Pain [None]
  - Non-cardiac chest pain [Recovered/Resolved]
  - Dyspnoea [Recovered/Resolved]
  - Fatigue [Recovered/Resolved]
  - Scar [None]
  - Scar pain [None]
  - Fibromyalgia [None]
  - Pain [None]
  - Post-traumatic stress disorder [None]
  - Fear of death [None]
  - Panic attack [None]
